FAERS Safety Report 12804017 (Version 5)
Quarter: 2017Q3

REPORT INFORMATION
  Report Type: Report from Study
  Country: JP (occurrence: JP)
  Receive Date: 20161003
  Receipt Date: 20170925
  Transmission Date: 20171127
  Serious: Yes (Hospitalization, Other)
  Sender: FDA-Public Use
  Company Number: JP-ACTELION-A-CH2016-143010

PATIENT
  Age: 38 Year
  Sex: Male

DRUGS (46)
  1. EPOPROSTENOL ACT [Suspect]
     Active Substance: EPOPROSTENOL
     Dosage: 28.85 NG/KG, PER MIN
     Route: 042
  2. EPOPROSTENOL ACT [Suspect]
     Active Substance: EPOPROSTENOL
     Dosage: 27.35 NG/KG, PER MIN
     Route: 042
  3. EPOPROSTENOL ACT [Suspect]
     Active Substance: EPOPROSTENOL
     Dosage: 5.34 NG/KG, PER MIN
     Route: 042
  4. EPOPROSTENOL ACT [Suspect]
     Active Substance: EPOPROSTENOL
     Dosage: 11.54 NG/KG, PER MIN
     Route: 042
  5. EPOPROSTENOL ACT [Suspect]
     Active Substance: EPOPROSTENOL
     Dosage: 25.64 NG/KG, PER MIN
     Route: 042
  6. EPOPROSTENOL ACT [Suspect]
     Active Substance: EPOPROSTENOL
     Dosage: 31.73 NG/KG, PER MIN
     Route: 042
     Dates: start: 20131204, end: 20140121
  7. EPOPROSTENOL ACT [Suspect]
     Active Substance: EPOPROSTENOL
     Dosage: 36.5 NG/KG, PER MIN
     Route: 042
     Dates: start: 20140122, end: 20140225
  8. TRACLEER [Suspect]
     Active Substance: BOSENTAN
     Dosage: 62.5 MG, BID
     Route: 048
     Dates: start: 20150121, end: 20150127
  9. TRACLEER [Suspect]
     Active Substance: BOSENTAN
     Dosage: 125 MG, BID
     Route: 048
     Dates: start: 20150128, end: 20150729
  10. TORASEMIDE [Concomitant]
     Active Substance: TORSEMIDE
     Indication: PRODUCT USED FOR UNKNOWN INDICATION
  11. EPOPROSTENOL ACT [Suspect]
     Active Substance: EPOPROSTENOL
     Dosage: 1.5 NG/KG, PER MIN
     Route: 042
  12. TRACLEER [Suspect]
     Active Substance: BOSENTAN
     Dosage: 31.25 MG, BID
     Route: 048
     Dates: start: 20140322, end: 20140924
  13. TRACLEER [Suspect]
     Active Substance: BOSENTAN
     Dosage: 31.25 MG, BID
     Route: 048
     Dates: end: 20150120
  14. SILDENAFIL CITRATE. [Concomitant]
     Active Substance: SILDENAFIL CITRATE
     Indication: PRODUCT USED FOR UNKNOWN INDICATION
     Dosage: UNK
  15. SPIRONOLACTONE. [Concomitant]
     Active Substance: SPIRONOLACTONE
     Indication: PRODUCT USED FOR UNKNOWN INDICATION
  16. EPOPROSTENOL ACT [Suspect]
     Active Substance: EPOPROSTENOL
     Indication: PULMONARY ARTERIAL HYPERTENSION
     Dosage: 0.43 NG/KG, PER MIN
     Route: 042
     Dates: start: 20131003
  17. EPOPROSTENOL ACT [Suspect]
     Active Substance: EPOPROSTENOL
     Dosage: 7.91 NG/KG, PER MIN
     Route: 042
  18. EPOPROSTENOL ACT [Suspect]
     Active Substance: EPOPROSTENOL
     Dosage: 46.72 NG/KG, PER MIN
     Route: 042
     Dates: start: 20160217
  19. EPOPROSTENOL ACT [Suspect]
     Active Substance: EPOPROSTENOL
     Dosage: 49.23 NG/KG, PER MIN
     Route: 042
     Dates: start: 20160314
  20. EPOPROSTENOL ACT [Suspect]
     Active Substance: EPOPROSTENOL
     Dosage: 50.7 NG/KG, PER MIN
     Route: 042
     Dates: start: 20160415
  21. ADCIRCA [Suspect]
     Active Substance: TADALAFIL
     Indication: PULMONARY ARTERIAL HYPERTENSION
     Dosage: 40 MG, QD
     Route: 048
     Dates: start: 20130827, end: 201412
  22. ADCIRCA [Suspect]
     Active Substance: TADALAFIL
     Dosage: 5 MG, QD
     Route: 048
     Dates: start: 20150204, end: 20150208
  23. CARBAZOCHROME SODIUM SULFONATE TRIHYDRATE [Concomitant]
     Indication: PRODUCT USED FOR UNKNOWN INDICATION
  24. TRANEXAMIC ACID. [Concomitant]
     Active Substance: TRANEXAMIC ACID
     Indication: PRODUCT USED FOR UNKNOWN INDICATION
  25. OXYGEN. [Concomitant]
     Active Substance: OXYGEN
     Indication: PRODUCT USED FOR UNKNOWN INDICATION
  26. EPOPROSTENOL ACT [Suspect]
     Active Substance: EPOPROSTENOL
     Dosage: 37.9 NG/KG, PER MIN
     Route: 042
     Dates: start: 20140226, end: 20140317
  27. EPOPROSTENOL ACT [Suspect]
     Active Substance: EPOPROSTENOL
     Dosage: 29.81 NG/KG, PER MIN
     Route: 042
  28. EPOPROSTENOL ACT [Suspect]
     Active Substance: EPOPROSTENOL
     Dosage: 55.3 NG/KG, PER MIN
     Route: 042
     Dates: start: 20160516
  29. EPOPROSTENOL ACT [Suspect]
     Active Substance: EPOPROSTENOL
     Dosage: 63.3 NG/KG, PER MIN
     Route: 042
     Dates: start: 20160824
  30. PREDONINE [Suspect]
     Active Substance: PREDNISOLONE
     Indication: PRODUCT USED FOR UNKNOWN INDICATION
     Route: 065
  31. EPOPROSTENOL ACT [Suspect]
     Active Substance: EPOPROSTENOL
     Dosage: 40.6 NG/KG, PER MIN
     Route: 042
     Dates: start: 20140318
  32. TRACLEER [Suspect]
     Active Substance: BOSENTAN
     Indication: PULMONARY ARTERIAL HYPERTENSION
     Dosage: 125 MG, QD
     Route: 048
     Dates: start: 20130830, end: 20140321
  33. ADCIRCA [Suspect]
     Active Substance: TADALAFIL
     Dosage: 40 MG, QD
     Route: 048
     Dates: start: 20150327
  34. TADALAFIL [Concomitant]
     Active Substance: TADALAFIL
     Indication: PRODUCT USED FOR UNKNOWN INDICATION
  35. BERAPROST SODIUM [Concomitant]
     Active Substance: BERAPROST SODIUM
     Indication: PRODUCT USED FOR UNKNOWN INDICATION
  36. DEXTROMETHORPHAN HYDROBROMIDE. [Concomitant]
     Active Substance: DEXTROMETHORPHAN HYDROBROMIDE
     Indication: PRODUCT USED FOR UNKNOWN INDICATION
  37. EPOPROSTENOL ACT [Suspect]
     Active Substance: EPOPROSTENOL
     Dosage: 10.68 NG/KG, PER MIN
     Route: 042
  38. EPOPROSTENOL ACT [Suspect]
     Active Substance: EPOPROSTENOL
     Dosage: 17.95 NG/KG, PER MIN
     Route: 042
     Dates: start: 20131105
  39. EPOPROSTENOL ACT [Suspect]
     Active Substance: EPOPROSTENOL
     Dosage: 20.5 NG/KG, PER MIN
     Route: 042
  40. REVATIO [Suspect]
     Active Substance: SILDENAFIL CITRATE
     Indication: PULMONARY ARTERIAL HYPERTENSION
     Dosage: 30 MG, QD
     Route: 048
     Dates: start: 20160329, end: 20160405
  41. PREDONINE [Suspect]
     Active Substance: PREDNISOLONE
     Dosage: 5 MG, UNK
     Route: 065
     Dates: start: 20151005, end: 20151019
  42. FEBUXOSTAT. [Concomitant]
     Active Substance: FEBUXOSTAT
     Indication: PRODUCT USED FOR UNKNOWN INDICATION
  43. EPOPROSTENOL ACT [Suspect]
     Active Substance: EPOPROSTENOL
     Dosage: 24.79 NG/KG, PER MIN
     Route: 042
  44. EPOPROSTENOL ACT [Suspect]
     Active Substance: EPOPROSTENOL
     Dosage: 48.72 NG/KG, PER MIN
     Route: 042
     Dates: start: 20150728
  45. REVATIO [Suspect]
     Active Substance: SILDENAFIL CITRATE
     Dosage: 60 MG, QD
     Route: 048
     Dates: start: 20160411
  46. AZOSEMIDE [Concomitant]
     Active Substance: AZOSEMIDE
     Indication: PRODUCT USED FOR UNKNOWN INDICATION

REACTIONS (35)
  - Otitis media [Recovered/Resolved]
  - Feeling abnormal [Recovered/Resolved]
  - Haemoptysis [Recovered/Resolved]
  - Urticaria [Recovering/Resolving]
  - Flushing [Recovered/Resolved]
  - Silent thyroiditis [Recovering/Resolving]
  - Abdominal pain upper [Recovered/Resolved]
  - Papule [Recovered/Resolved]
  - Arthralgia [Recovering/Resolving]
  - Erythema [Recovered/Resolved]
  - Generalised tonic-clonic seizure [Recovered/Resolved]
  - Cardiac failure [Not Recovered/Not Resolved]
  - Thyroiditis subacute [Recovering/Resolving]
  - Hot flush [Recovering/Resolving]
  - Hypokalaemia [Recovering/Resolving]
  - Catheter site haemorrhage [Recovering/Resolving]
  - Toothache [Recovered/Resolved]
  - Face oedema [Recovered/Resolved]
  - Cellulitis [Recovered/Resolved]
  - Diarrhoea [Recovering/Resolving]
  - Loss of consciousness [Recovered/Resolved]
  - C-reactive protein increased [Recovered/Resolved]
  - Vomiting [Recovering/Resolving]
  - Catheter site dermatitis [Recovering/Resolving]
  - Platelet count decreased [Not Recovered/Not Resolved]
  - Headache [Recovering/Resolving]
  - Rash [Recovering/Resolving]
  - White blood cell count increased [Recovered/Resolved]
  - Platelet transfusion [Unknown]
  - Malaise [Recovering/Resolving]
  - Catheter site granuloma [Recovering/Resolving]
  - Hypothyroidism [Recovered/Resolved]
  - Nausea [Recovering/Resolving]
  - Tenderness [Recovered/Resolved]
  - Ventricular tachycardia [Recovered/Resolved]

NARRATIVE: CASE EVENT DATE: 20131004
